FAERS Safety Report 4418756-0 (Version None)
Quarter: 2004Q3

REPORT INFORMATION
  Report Type: 
  Country: None (occurrence: None)
  Receive Date: 20040809
  Receipt Date: 20040108
  Transmission Date: 20050211
  Serious: No
  Sender: FDA-Public Use
  Company Number: US-GLAXOSMITHKLINE-A0491979A

PATIENT
  Age: 29 Year
  Sex: Male

DRUGS (2)
  1. PAXIL [Suspect]
     Dosage: 20MG PER DAY
     Route: 048
     Dates: start: 20040102, end: 20040104
  2. CLARINEX [Concomitant]

REACTIONS (2)
  - ANORGASMIA [None]
  - DYSPAREUNIA [None]
